FAERS Safety Report 8695704 (Version 2)
Quarter: 2013Q4

REPORT INFORMATION
  Report Type: Spontaneous
  Country: US (occurrence: US)
  Receive Date: 20120731
  Receipt Date: 20131101
  Transmission Date: 20140711
  Serious: No
  Sender: FDA-Public Use
  Company Number: US-009507513-1207USA010221

PATIENT
  Age: 67 Year
  Sex: Male

DRUGS (4)
  1. JANUMET [Suspect]
     Route: 048
  2. GLIPIZIDE [Suspect]
  3. LANTUS [Suspect]
     Route: 058
  4. ACTOS [Suspect]

REACTIONS (3)
  - Blood glucose increased [Unknown]
  - Pain in extremity [Unknown]
  - Limb injury [Unknown]
